FAERS Safety Report 9320127 (Version 1)
Quarter: 2013Q2

REPORT INFORMATION
  Report Type: Spontaneous
  Country: CN (occurrence: CN)
  Receive Date: 20130530
  Receipt Date: 20130530
  Transmission Date: 20140414
  Serious: Yes (Other)
  Sender: FDA-Public Use
  Company Number: CN-BAXTER-2013BAX018944

PATIENT
  Age: 55 Year
  Sex: Female
  Weight: 55 kg

DRUGS (2)
  1. COMPOUND SODIUM CHLORIDE INJECTION [Suspect]
     Indication: HYPOKALAEMIA
     Route: 041
     Dates: start: 20120502, end: 20120503
  2. POTASSIUM CHLORIDE INJECTION [Suspect]
     Indication: HYPOKALAEMIA
     Route: 041
     Dates: start: 20130502

REACTIONS (2)
  - Hypoaesthesia [Recovering/Resolving]
  - Rash [Recovering/Resolving]
